FAERS Safety Report 5428622-X (Version None)
Quarter: 2007Q3

REPORT INFORMATION
  Report Type: 
  Country: None (occurrence: None)
  Receive Date: 20070824
  Receipt Date: 20070816
  Transmission Date: 20080115
  Serious: Yes (Hospitalization, Other)
  Sender: FDA-Public Use
  Company Number: 2007RL000369

PATIENT
  Age: 65 Year
  Sex: Female
  Weight: 45.3597 kg

DRUGS (7)
  1. RYTHMOL [Suspect]
     Indication: DRUG USE FOR UNKNOWN INDICATION
     Dosage: ;PO
     Route: 048
     Dates: start: 20070401, end: 20070101
  2. PROCRIT [Suspect]
     Indication: ANAEMIA OF MALIGNANT DISEASE
     Dosage: 20000 IU;QW;SC : 20000 IU;BIW;SC : 40000 IU;X1;SC
     Route: 058
     Dates: start: 19910101, end: 20070601
  3. PROCRIT [Suspect]
     Indication: ANAEMIA OF MALIGNANT DISEASE
     Dosage: 20000 IU;QW;SC : 20000 IU;BIW;SC : 40000 IU;X1;SC
     Route: 058
     Dates: start: 20070601
  4. PROCRIT [Suspect]
     Indication: ANAEMIA OF MALIGNANT DISEASE
     Dosage: 20000 IU;QW;SC : 20000 IU;BIW;SC : 40000 IU;X1;SC
     Route: 058
     Dates: start: 20070622
  5. TORPOL XL [Suspect]
     Indication: DRUG USE FOR UNKNOWN INDICATION
     Dosage: ;PO
     Route: 048
     Dates: start: 20070401
  6. ARANESP [Suspect]
     Indication: ANAEMIA OF MALIGNANT DISEASE
  7. INDERAL [Concomitant]

REACTIONS (8)
  - BLOOD PRESSURE INCREASED [None]
  - BLOOD SODIUM DECREASED [None]
  - ERYTHEMA [None]
  - HAEMATOCRIT DECREASED [None]
  - HEADACHE [None]
  - OEDEMA PERIPHERAL [None]
  - PRURITUS [None]
  - TREATMENT NONCOMPLIANCE [None]
